FAERS Safety Report 14982614 (Version 7)
Quarter: 2023Q2

REPORT INFORMATION
  Report Type: Other
  Country: US (occurrence: None)
  Receive Date: 20180607
  Receipt Date: 20230608
  Transmission Date: 20230721
  Serious: Yes (Other)
  Sender: FDA-Public Use
  Company Number: US-ROCHE-2134188

PATIENT
  Age: 52 Year
  Sex: Male
  Weight: 83.99 kg

DRUGS (21)
  1. OCREVUS [Suspect]
     Active Substance: OCRELIZUMAB
     Indication: Primary progressive multiple sclerosis
     Dosage: SUBSEQUENT DOSE ON: 26/JUN/2018 AND 26/DEC/2018.
     Route: 042
     Dates: start: 20170624, end: 201707
  2. OCREVUS [Suspect]
     Active Substance: OCRELIZUMAB
     Route: 042
     Dates: start: 20171226
  3. DALFAMPRIDINE [Concomitant]
     Active Substance: DALFAMPRIDINE
     Route: 048
     Dates: start: 201702
  4. BACLOFEN [Concomitant]
     Active Substance: BACLOFEN
     Indication: Muscle spasms
     Route: 048
  5. DOXAZOSIN [Concomitant]
     Active Substance: DOXAZOSIN MESYLATE
     Route: 048
     Dates: start: 2017
  6. AMANTADINE [Concomitant]
     Active Substance: AMANTADINE
     Indication: Fatigue
     Route: 048
     Dates: start: 201902
  7. ACYCLOVIR [Concomitant]
     Active Substance: ACYCLOVIR
     Route: 048
     Dates: start: 201712
  8. ARMODAFINIL [Concomitant]
     Active Substance: ARMODAFINIL
     Indication: Fatigue
     Route: 048
     Dates: start: 201806
  9. CYMBALTA [Concomitant]
     Active Substance: DULOXETINE HYDROCHLORIDE
     Indication: Anxiety
     Route: 048
     Dates: start: 201809
  10. CYMBALTA [Concomitant]
     Active Substance: DULOXETINE HYDROCHLORIDE
     Indication: Mood swings
  11. CYMBALTA [Concomitant]
     Active Substance: DULOXETINE HYDROCHLORIDE
     Indication: Depression
  12. CYMBALTA [Concomitant]
     Active Substance: DULOXETINE HYDROCHLORIDE
     Indication: Pain
  13. TIZANIDINE [Concomitant]
     Active Substance: TIZANIDINE
     Dosage: AT BEDTIME AS NEEDED ALTERNATES WITH ADVIL PM
     Route: 031
     Dates: start: 201902
  14. VITAMIN D3 [Concomitant]
     Active Substance: CHOLECALCIFEROL
     Indication: Vitamin D deficiency
     Dates: start: 201706
  15. MAGNESIUM [Concomitant]
     Active Substance: MAGNESIUM
     Indication: Muscle spasms
     Route: 048
     Dates: start: 2018
  16. IRON [Concomitant]
     Active Substance: IRON
     Indication: Anaemia
     Route: 048
     Dates: start: 2016
  17. ASCORBIC ACID\VITAMIN B COMPLEX [Concomitant]
     Active Substance: ASCORBIC ACID\VITAMIN B COMPLEX
     Dates: start: 2017
  18. BIOTIN [Concomitant]
     Active Substance: BIOTIN
     Dates: start: 2017
  19. ACYCLOVIR [Concomitant]
     Active Substance: ACYCLOVIR
  20. FUROSEMIDE [Concomitant]
     Active Substance: FUROSEMIDE
  21. FLUOCINOLONE ACETONIDE [Concomitant]
     Active Substance: FLUOCINOLONE ACETONIDE

REACTIONS (31)
  - Skin cancer [Recovered/Resolved]
  - Neoplasm [Not Recovered/Not Resolved]
  - Herpes zoster [Recovered/Resolved]
  - Multiple sclerosis [Recovered/Resolved with Sequelae]
  - Urinary retention [Recovered/Resolved]
  - Headache [Recovered/Resolved]
  - Flushing [Recovered/Resolved]
  - Feeling hot [Recovered/Resolved]
  - Oral herpes [Recovered/Resolved]
  - Hypertension [Recovered/Resolved]
  - Nasopharyngitis [Recovered/Resolved]
  - Weight decreased [Recovered/Resolved]
  - Restlessness [Unknown]
  - Vitamin D deficiency [Not Recovered/Not Resolved]
  - Fall [Unknown]
  - Bladder disorder [Not Recovered/Not Resolved]
  - Alopecia [Not Recovered/Not Resolved]
  - Dysphagia [Not Recovered/Not Resolved]
  - Fatigue [Not Recovered/Not Resolved]
  - Gait disturbance [Not Recovered/Not Resolved]
  - Cognitive disorder [Not Recovered/Not Resolved]
  - Anxiety [Not Recovered/Not Resolved]
  - Mood swings [Not Recovered/Not Resolved]
  - Depression [Not Recovered/Not Resolved]
  - Pain [Not Recovered/Not Resolved]
  - Dyslipidaemia [Unknown]
  - Overweight [Unknown]
  - Erectile dysfunction [Unknown]
  - Upper respiratory tract infection [Unknown]
  - Benign prostatic hyperplasia [Unknown]
  - Arthralgia [Unknown]

NARRATIVE: CASE EVENT DATE: 20171201
